FAERS Safety Report 14602410 (Version 1)
Quarter: 2018Q1

REPORT INFORMATION
  Report Type: Spontaneous
  Country: US (occurrence: US)
  Receive Date: 20180306
  Receipt Date: 20180306
  Transmission Date: 20180509
  Serious: No
  Sender: FDA-Public Use
  Company Number: US-PFIZER INC-2018087823

PATIENT
  Age: 64 Year
  Sex: Female
  Weight: 50.8 kg

DRUGS (2)
  1. ESTRING [Suspect]
     Active Substance: ESTRADIOL
     Indication: DYSPAREUNIA
     Dates: start: 20180223, end: 20180226
  2. ESTRING [Suspect]
     Active Substance: ESTRADIOL
     Indication: CYSTITIS

REACTIONS (5)
  - Vaginal odour [Unknown]
  - Product use in unapproved indication [Unknown]
  - Hot flush [Unknown]
  - Vulvovaginal discomfort [Unknown]
  - Vulvovaginal mycotic infection [Unknown]

NARRATIVE: CASE EVENT DATE: 201802
